FAERS Safety Report 7096905-6 (Version None)
Quarter: 2010Q4

REPORT INFORMATION
  Report Type: 
  Country: None (occurrence: None)
  Receive Date: 20101111
  Receipt Date: 20100106
  Transmission Date: 20110411
  Serious: No
  Sender: FDA-Public Use
  Company Number: US-KINGPHARMUSA00001-K201000020

PATIENT
  Sex: Male
  Weight: 100.68 kg

DRUGS (3)
  1. FLECTOR [Suspect]
     Indication: ARTHRALGIA
     Dosage: 1 PATCH, Q 12 HOURS OFF AND ON
     Route: 061
     Dates: start: 20080101, end: 20100101
  2. FLECTOR [Suspect]
     Indication: MUSCULOSKELETAL PAIN
  3. LORTAB [Concomitant]
     Dosage: UNK

REACTIONS (4)
  - APPLICATION SITE ERYTHEMA [None]
  - APPLICATION SITE PRURITUS [None]
  - APPLICATION SITE SWELLING [None]
  - FURUNCLE [None]
